FAERS Safety Report 9835373 (Version 3)
Quarter: 2014Q1

REPORT INFORMATION
  Report Type: Report from Study
  Country: SE (occurrence: SE)
  Receive Date: 20140122
  Receipt Date: 20140203
  Transmission Date: 20141002
  Serious: Yes (Hospitalization)
  Sender: FDA-Public Use
  Company Number: SE-PFIZER INC-2013289415

PATIENT
  Age: 68 Year
  Sex: Female
  Weight: 49 kg

DRUGS (8)
  1. IRINOTECAN HCL [Suspect]
     Indication: COLORECTAL CANCER METASTATIC
     Dosage: 180 MG/M2, ON DAY ONE EVERY 14 DAYS
     Route: 042
     Dates: start: 20120927, end: 20120927
  2. FLUOROURACIL [Suspect]
     Indication: COLORECTAL CANCER METASTATIC
     Dosage: 400 MG/M2, ON DAY ONE EVERY 14 DAYS
     Route: 040
     Dates: start: 20120927, end: 20120927
  3. FLUOROURACIL [Suspect]
     Dosage: 2400 MG/M2, ON DAYS ONE AND TWO EVERY 14 DAYS
     Route: 042
     Dates: start: 20120927, end: 20120927
  4. FOLINIC ACID [Suspect]
     Indication: COLORECTAL CANCER METASTATIC
     Dosage: 400 MG/M2, ON DAY ONE EVERY 14 DAYS
     Route: 042
     Dates: start: 20120927, end: 20120927
  5. BLINDED THERAPY [Suspect]
     Indication: COLORECTAL CANCER METASTATIC
     Dosage: UNK
     Dates: start: 20120927, end: 20120927
  6. MORPHINE [Concomitant]
     Indication: ABDOMINAL PAIN
     Dosage: UNK
     Dates: start: 20121008
  7. MORPHINE [Concomitant]
     Dosage: 40 MG, 2X/DAY
  8. PARACETAMOL [Concomitant]
     Indication: ABDOMINAL PAIN
     Dosage: UNK
     Dates: start: 2011

REACTIONS (3)
  - Blood bilirubin increased [Recovered/Resolved]
  - Alanine aminotransferase increased [Not Recovered/Not Resolved]
  - Abdominal pain [Recovered/Resolved with Sequelae]
